FAERS Safety Report 12744741 (Version 2)
Quarter: 2016Q3

REPORT INFORMATION
  Report Type: Spontaneous
  Country: FR (occurrence: FR)
  Receive Date: 20160915
  Receipt Date: 20160916
  Transmission Date: 20161109
  Serious: Yes (Hospitalization)
  Sender: FDA-Public Use
  Company Number: FR-BAXTER-2016BAX046222

PATIENT
  Age: 10 Year
  Sex: Female
  Weight: 27.8 kg

DRUGS (7)
  1. ZOPHREN [Concomitant]
     Active Substance: ONDANSETRON
     Indication: PRODUCT USED FOR UNKNOWN INDICATION
     Route: 065
  2. ELUDRIL [Concomitant]
     Active Substance: CHLORHEXIDINE GLUCONATE\CHLOROBUTANOL
     Indication: PRODUCT USED FOR UNKNOWN INDICATION
     Route: 065
  3. UROMITEXAN 5 G/50 ML, SOLUTION INJECTABLE POUR PERFUSION EN FLACON [Suspect]
     Active Substance: MESNA
     Indication: NEPHROPROTECTIVE THERAPY
     Dosage: ONCE IN ONE SINGLE INTAKE
     Route: 042
     Dates: start: 20140318, end: 20140318
  4. DIFFU K [Concomitant]
     Active Substance: POTASSIUM CHLORIDE
     Indication: PRODUCT USED FOR UNKNOWN INDICATION
     Route: 065
  5. IFOSFAMIDE EG [Suspect]
     Active Substance: IFOSFAMIDE
     Indication: OSTEOSARCOMA
     Dosage: INFUSION, FIRST COURSE, WITHDRAWN AFTER DAY 2 TREATMENT DUE TO THE EVENT
     Route: 042
     Dates: start: 20140318, end: 20140319
  6. CACIT [Concomitant]
     Active Substance: CALCIUM\VITAMIN D
     Indication: PRODUCT USED FOR UNKNOWN INDICATION
     Route: 065
  7. ETOPOPHOS [Suspect]
     Active Substance: ETOPOSIDE PHOSPHATE
     Indication: OSTEOSARCOMA
     Dosage: FIRST COURSE
     Route: 065
     Dates: start: 20140318

REACTIONS (1)
  - Encephalopathy [Recovered/Resolved]

NARRATIVE: CASE EVENT DATE: 20140319
